FAERS Safety Report 14326771 (Version 1)
Quarter: 2017Q4

REPORT INFORMATION
  Report Type: Spontaneous
  Country: US (occurrence: US)
  Receive Date: 20171226
  Receipt Date: 20171226
  Transmission Date: 20180321
  Serious: Yes (Other)
  Sender: FDA-Public Use
  Company Number: None

PATIENT
  Age: 38 Year
  Sex: Female
  Weight: 46.44 kg

DRUGS (5)
  1. CYCLOPHOSPHAMIDE. [Concomitant]
     Active Substance: CYCLOPHOSPHAMIDE
  2. VARUBI [Suspect]
     Active Substance: ROLAPITANT
     Indication: ANTIEMETIC SUPPORTIVE CARE
     Dosage: ?          OTHER FREQUENCY:WITH EACH CHEMO;?
     Route: 041
     Dates: start: 20171215, end: 20171215
  3. DOXORUBICIN [Concomitant]
     Active Substance: DOXORUBICIN
  4. DEXAMETHASONE. [Concomitant]
     Active Substance: DEXAMETHASONE
  5. KYTRIL [Concomitant]
     Active Substance: GRANISETRON HYDROCHLORIDE

REACTIONS (3)
  - Infusion related reaction [None]
  - Somnolence [None]
  - Pruritus [None]

NARRATIVE: CASE EVENT DATE: 20171215
